FAERS Safety Report 6507770-7 (Version None)
Quarter: 2009Q4

REPORT INFORMATION
  Report Type: 
  Country: None (occurrence: None)
  Receive Date: 20091201
  Receipt Date: 20090513
  Transmission Date: 20100525
  Serious: Yes (Other)
  Sender: FDA-Public Use
  Company Number: 2009-197011-NL

PATIENT
  Age: 30 Year
  Sex: Female
  Weight: 57.2 kg

DRUGS (1)
  1. NUVARING [Suspect]
     Indication: DRUG USE FOR UNKNOWN INDICATION
     Dates: end: 20090129

REACTIONS (2)
  - PULMONARY EMBOLISM [None]
  - THROMBOSIS [None]
